FAERS Safety Report 14141534 (Version 1)
Quarter: 2017Q4

REPORT INFORMATION
  Report Type: Spontaneous
  Country: US (occurrence: US)
  Receive Date: 20171028
  Receipt Date: 20171028
  Transmission Date: 20180321
  Serious: Yes (Other)
  Sender: FDA-Public Use
  Company Number: None

PATIENT
  Age: 75 Year
  Sex: Female

DRUGS (1)
  1. MUPIROCIN. [Suspect]
     Active Substance: MUPIROCIN
     Indication: INFECTION PROPHYLAXIS
     Route: 061
     Dates: start: 20171017, end: 20171027

REACTIONS (5)
  - Nail bed bleeding [None]
  - Oedema peripheral [None]
  - Nail discolouration [None]
  - Chemical burn of skin [None]
  - Product quality issue [None]

NARRATIVE: CASE EVENT DATE: 20171027
